FAERS Safety Report 5385323-4 (Version None)
Quarter: 2007Q3

REPORT INFORMATION
  Report Type: 
  Country: None (occurrence: None)
  Receive Date: 20070709
  Receipt Date: 20070709
  Transmission Date: 20080115
  Serious: No
  Sender: FDA-Public Use
  Company Number: None

PATIENT
  Sex: Male

DRUGS (1)
  1. LANTUS [Suspect]
     Dates: start: 20070609

REACTIONS (7)
  - BURNS THIRD DEGREE [None]
  - DIABETES MELLITUS INADEQUATE CONTROL [None]
  - DRUG DOSE OMISSION [None]
  - INJECTION SITE IRRITATION [None]
  - MUSCULOSKELETAL PAIN [None]
  - PHARMACEUTICAL PRODUCT COMPLAINT [None]
  - SKIN INJURY [None]
